FAERS Safety Report 16682807 (Version 1)
Quarter: 2019Q3

REPORT INFORMATION
  Report Type: Spontaneous
  Country: US (occurrence: US)
  Receive Date: 20190808
  Receipt Date: 20190808
  Transmission Date: 20191004
  Serious: No
  Sender: FDA-Public Use
  Company Number: US-PFIZER INC-2019337261

PATIENT
  Age: 32 Year
  Sex: Female
  Weight: 71.67 kg

DRUGS (6)
  1. LYRICA [Suspect]
     Active Substance: PREGABALIN
     Indication: ANXIETY
     Dosage: 150 MG, THREE TIMES A DAY
     Route: 048
     Dates: start: 201804, end: 20190721
  2. PROPANOLOL [PROPRANOLOL] [Concomitant]
     Active Substance: PROPRANOLOL HYDROCHLORIDE
     Indication: MYOCARDIAL INFARCTION
     Dosage: 5 MG, 3X/DAY [1/2 OF 10MG TABLET THREE TIMES A DAY]
     Dates: start: 201804
  3. PROPANOLOL [PROPRANOLOL] [Concomitant]
     Active Substance: PROPRANOLOL HYDROCHLORIDE
     Indication: SINUS TACHYCARDIA
  4. PROPANOLOL [PROPRANOLOL] [Concomitant]
     Active Substance: PROPRANOLOL HYDROCHLORIDE
     Indication: HEART RATE INCREASED
  5. LYRICA [Suspect]
     Active Substance: PREGABALIN
     Indication: HEART RATE INCREASED
  6. LYRICA [Suspect]
     Active Substance: PREGABALIN
     Indication: SEIZURE
     Dosage: UNK, THREE TIMES A DAY (50MG OR 75MG)
     Dates: end: 201804

REACTIONS (1)
  - Dizziness [Unknown]

NARRATIVE: CASE EVENT DATE: 201804
